FAERS Safety Report 15227644 (Version 4)
Quarter: 2019Q4

REPORT INFORMATION
  Report Type: Spontaneous
  Country: JP (occurrence: JP)
  Receive Date: 20180801
  Receipt Date: 20191217
  Transmission Date: 20200122
  Serious: Yes (Hospitalization, Other)
  Sender: FDA-Public Use
  Company Number: JP-UNITED THERAPEUTICS-UNT-2018-004643

PATIENT
  Age: 52 Year
  Sex: Female
  Weight: 47 kg

DRUGS (30)
  1. OPSUMIT [Concomitant]
     Active Substance: MACITENTAN
     Indication: PULMONARY ARTERIAL HYPERTENSION
     Dosage: UNK
     Route: 048
     Dates: start: 201605
  2. TAKECAB [Concomitant]
     Active Substance: VONOPRAZAN FUMURATE
     Indication: PROPHYLAXIS
     Dosage: UNK
     Route: 048
  3. BIOFERMIN R [Concomitant]
     Active Substance: DIETARY SUPPLEMENT\PROBIOTICS
     Indication: PRODUCT USED FOR UNKNOWN INDICATION
     Dosage: UNK
     Route: 048
     Dates: end: 2017
  4. GASMOTIN [Concomitant]
     Active Substance: MOSAPRIDE CITRATE
     Indication: PROPHYLAXIS
     Dosage: UNK
     Route: 048
     Dates: end: 2017
  5. LUNESTA [Concomitant]
     Active Substance: ESZOPICLONE
     Indication: PROPHYLAXIS
     Dosage: UNK
     Route: 048
     Dates: end: 20170411
  6. REMODULIN [Suspect]
     Active Substance: TREPROSTINIL
     Dosage: 0.1085 ?G/KG, CONTINUING
     Route: 041
  7. REMODULIN [Suspect]
     Active Substance: TREPROSTINIL
     Dosage: 0.1348 ?G/KG, CONTINUING
     Route: 041
  8. UPTRAVI [Concomitant]
     Active Substance: SELEXIPAG
     Indication: PULMONARY ARTERIAL HYPERTENSION
     Dosage: UNK
     Route: 048
     Dates: start: 20170809
  9. RISPERDAL [Concomitant]
     Active Substance: RISPERIDONE
     Indication: PROPHYLAXIS
     Dosage: UNK
     Route: 048
     Dates: end: 20161130
  10. REMODULIN [Suspect]
     Active Substance: TREPROSTINIL
     Dosage: 0.13 ?G/KG, CONTINUING
     Route: 041
  11. PRIMPERAN [Concomitant]
     Active Substance: METOCLOPRAMIDE HYDROCHLORIDE
     Indication: PRODUCT USED FOR UNKNOWN INDICATION
     Dosage: UNK
     Route: 048
  12. FLUITRAN [Concomitant]
     Active Substance: TRICHLORMETHIAZIDE
     Indication: PROPHYLAXIS
     Dosage: 0.5 MG, UNK
     Route: 048
     Dates: start: 20180703
  13. ADEMPAS [Concomitant]
     Active Substance: RIOCIGUAT
     Indication: PULMONARY ARTERIAL HYPERTENSION
     Dosage: UNK
     Route: 048
     Dates: start: 20170809
  14. REMODULIN [Suspect]
     Active Substance: TREPROSTINIL
     Indication: PULMONARY ARTERIAL HYPERTENSION
     Dosage: 0.070 ?G/KG, CONTINUING
     Route: 041
     Dates: start: 20161122
  15. REMODULIN [Suspect]
     Active Substance: TREPROSTINIL
     Dosage: 0.0603 ?G/KG, CONTINUING
     Route: 041
  16. TETRAMIDE [Concomitant]
     Active Substance: MIANSERIN
     Indication: PROPHYLAXIS
     Dosage: UNK
     Route: 048
     Dates: end: 20170411
  17. ALDACTONE A [Concomitant]
     Active Substance: SPIRONOLACTONE
     Indication: INTRA-ABDOMINAL FLUID COLLECTION
     Dosage: UNK
     Route: 048
  18. PANTOSIN [Concomitant]
     Active Substance: PANTETHINE
     Indication: PROPHYLAXIS
     Dosage: UNK
     Route: 048
     Dates: end: 2017
  19. THYRADIN [Concomitant]
     Active Substance: LEVOTHYROXINE
     Indication: PRODUCT USED FOR UNKNOWN INDICATION
     Dosage: UNK
     Route: 048
     Dates: end: 20190209
  20. LASIX [Concomitant]
     Active Substance: FUROSEMIDE
     Indication: PRODUCT USED FOR UNKNOWN INDICATION
     Dosage: UNK
     Route: 048
  21. SAMTIREL [Concomitant]
     Active Substance: ATOVAQUONE
     Indication: PROPHYLAXIS
     Dosage: UNK
     Route: 048
     Dates: start: 20170411, end: 20170808
  22. SODIUM PICOSULFATE HYDRATE [Concomitant]
     Active Substance: SODIUM PICOSULFATE
     Indication: PROPHYLAXIS
     Dosage: UNK
     Route: 048
     Dates: start: 20180806
  23. ADCIRCA [Concomitant]
     Active Substance: TADALAFIL
     Indication: PULMONARY ARTERIAL HYPERTENSION
     Dosage: UNK
     Route: 048
     Dates: start: 201611, end: 20170809
  24. PREDNISOLONE. [Concomitant]
     Active Substance: PREDNISOLONE
     Indication: BASEDOW^S DISEASE
     Dosage: UNK
     Route: 048
  25. DAIKENCHUTO [Concomitant]
     Active Substance: HERBALS
     Indication: PROPHYLAXIS
     Dosage: UNK
     Route: 048
     Dates: end: 2018
  26. SAMSCA [Concomitant]
     Active Substance: TOLVAPTAN
     Indication: PRODUCT USED FOR UNKNOWN INDICATION
     Dosage: UNK
     Route: 048
  27. BONALON [Concomitant]
     Active Substance: ALENDRONATE SODIUM
     Indication: PROPHYLAXIS
     Dosage: UNK
     Route: 048
  28. ASPARA POTASSIUM [Concomitant]
     Active Substance: POTASSIUM ASPARTATE
     Indication: PROPHYLAXIS
     Dosage: UNK
     Route: 048
  29. MAGNESIUM OXIDE. [Concomitant]
     Active Substance: MAGNESIUM OXIDE
     Indication: PROPHYLAXIS
     Dosage: UNK
     Route: 048
  30. FERROMIA [Concomitant]
     Active Substance: SODIUM FERROUS CITRATE
     Indication: PRODUCT USED FOR UNKNOWN INDICATION
     Dosage: UNK
     Route: 048
     Dates: start: 20170120

REACTIONS (12)
  - Supraventricular tachycardia [Recovering/Resolving]
  - Pulmonary arterial hypertension [Recovering/Resolving]
  - Hypoaesthesia [Recovering/Resolving]
  - Pneumonia [Recovering/Resolving]
  - Constipation [Recovering/Resolving]
  - Weight increased [Recovering/Resolving]
  - Weight decreased [Recovering/Resolving]
  - Condition aggravated [Recovering/Resolving]
  - Blood potassium decreased [Recovering/Resolving]
  - Nausea [Recovering/Resolving]
  - Pulmonary congestion [Recovering/Resolving]
  - Disease recurrence [Recovering/Resolving]

NARRATIVE: CASE EVENT DATE: 20161124
